FAERS Safety Report 6871034-2 (Version None)
Quarter: 2010Q3

REPORT INFORMATION
  Report Type: 
  Country: None (occurrence: None)
  Receive Date: 20100723
  Receipt Date: 20100709
  Transmission Date: 20110219
  Serious: Yes (Other)
  Sender: FDA-Public Use
  Company Number: CA-SHIRE-SPV1-2010-01245

PATIENT

DRUGS (1)
  1. VYVANSE [Suspect]
     Route: 048

REACTIONS (1)
  - SKIN REACTION [None]
